FAERS Safety Report 9485945 (Version 1)
Quarter: 2013Q3

REPORT INFORMATION
  Report Type: Spontaneous
  Country: US (occurrence: None)
  Receive Date: 20130827
  Receipt Date: 20130827
  Transmission Date: 20140515
  Serious: No
  Sender: FDA-Public Use
  Company Number: None

PATIENT
  Age: 64 Year
  Sex: Female

DRUGS (3)
  1. REVLIMID [Suspect]
     Indication: PLASMA CELL MYELOMA
     Route: 048
  2. IVIG [Suspect]
     Indication: SCLERODERMA
  3. VELCADE/  MILLENNIUM OR REVLIMID [Concomitant]

REACTIONS (1)
  - Optic ischaemic neuropathy [None]
